FAERS Safety Report 18957703 (Version 1)
Quarter: 2021Q1

REPORT INFORMATION
  Report Type: Spontaneous
  Country: US (occurrence: US)
  Receive Date: 20210301
  Receipt Date: 20210301
  Transmission Date: 20210420
  Serious: Yes (Hospitalization)
  Sender: FDA-Public Use
  Company Number: None

PATIENT
  Age: 67 Year
  Sex: Male
  Weight: 136 kg

DRUGS (1)
  1. IBUPROFEN (IBUPROFEN 200MG TAB) [Suspect]
     Active Substance: IBUPROFEN
     Indication: PAIN
     Dates: start: 20190328, end: 20200518

REACTIONS (3)
  - Gastric haemorrhage [None]
  - Gastric ulcer haemorrhage [None]
  - Haemorrhage [None]

NARRATIVE: CASE EVENT DATE: 20200518
